FAERS Safety Report 4434316-X (Version None)
Quarter: 2004Q3

REPORT INFORMATION
  Report Type: 
  Country: None (occurrence: None)
  Receive Date: 20040825
  Receipt Date: 20040817
  Transmission Date: 20050211
  Serious: Yes (Hospitalization)
  Sender: FDA-Public Use
  Company Number: HQWYE19919AUG04

PATIENT
  Sex: Female

DRUGS (4)
  1. PREMPRO [Suspect]
     Indication: HORMONE REPLACEMENT THERAPY
  2. MEDROXYPROGESTERONE ACETATE [Suspect]
  3. PREMARIN [Suspect]
  4. PROVERA [Suspect]

REACTIONS (6)
  - BREAST CANCER METASTATIC [None]
  - LUNG DISORDER [None]
  - METASTASES TO NECK [None]
  - METASTASES TO SPLEEN [None]
  - METASTASES TO THORAX [None]
  - RADIATION INJURY [None]
